FAERS Safety Report 18817056 (Version 1)
Quarter: 2021Q1

REPORT INFORMATION
  Report Type: Spontaneous
  Country: TR (occurrence: TR)
  Receive Date: 20210201
  Receipt Date: 20210201
  Transmission Date: 20210419
  Serious: Yes (Life-Threatening, Hospitalization)
  Sender: FDA-Public Use
  Company Number: TR-ACELLA PHARMACEUTICALS, LLC-2106105

PATIENT
  Age: 3 Day
  Sex: Male
  Weight: 2.6 kg

DRUGS (3)
  1. PHENOBARBITAL. [Concomitant]
     Active Substance: PHENOBARBITAL
  2. PARA?PHENYLENEDIAMINE [Suspect]
     Active Substance: P-PHENYLENEDIAMINE
     Route: 061
  3. PHENYTOIN SODIUM. [Suspect]
     Active Substance: PHENYTOIN SODIUM
     Indication: SEIZURE
     Route: 065

REACTIONS (8)
  - Multiple organ dysfunction syndrome [Unknown]
  - Seizure [Unknown]
  - Cyanosis [Unknown]
  - Renal failure [Unknown]
  - Respiratory failure [Unknown]
  - Blood disorder [Unknown]
  - Respiratory distress [Unknown]
  - Subarachnoid haemorrhage [Unknown]
